FAERS Safety Report 7046234-1 (Version None)
Quarter: 2010Q4

REPORT INFORMATION
  Report Type: 
  Country: None (occurrence: None)
  Receive Date: 20101014
  Receipt Date: 20101012
  Transmission Date: 20110411
  Serious: Yes (Hospitalization)
  Sender: FDA-Public Use
  Company Number: A0874085A

PATIENT
  Sex: Female

DRUGS (11)
  1. TYKERB [Suspect]
     Dosage: 1250MG PER DAY
     Route: 048
     Dates: start: 20100729
  2. PANTOLOC [Concomitant]
     Route: 065
  3. LASIX [Concomitant]
     Route: 065
  4. METFORMIN [Concomitant]
     Route: 065
  5. NPH INSULIN [Concomitant]
     Route: 065
  6. HYDROMORPHONE HCL [Concomitant]
     Route: 065
  7. HEPARIN [Concomitant]
     Route: 065
  8. INHALERS [Concomitant]
     Route: 065
  9. XELODA [Concomitant]
     Route: 065
  10. HUMULIN 70/30 [Concomitant]
     Route: 065
  11. GLUCOPHAGE [Concomitant]
     Route: 065

REACTIONS (7)
  - CHEST DISCOMFORT [None]
  - DIARRHOEA [None]
  - HYPOAESTHESIA FACIAL [None]
  - INSOMNIA [None]
  - LUNG DISORDER [None]
  - PAIN IN JAW [None]
  - PHOTOPSIA [None]
